FAERS Safety Report 15082845 (Version 1)
Quarter: 2018Q2

REPORT INFORMATION
  Report Type: Spontaneous
  Country: JP (occurrence: JP)
  Receive Date: 20180628
  Receipt Date: 20180628
  Transmission Date: 20180711
  Serious: Yes (Other)
  Sender: FDA-Public Use
  Company Number: JP-ASTELLAS-2018US029309

PATIENT
  Age: 70 Year
  Sex: Female

DRUGS (3)
  1. TARCEVA [Suspect]
     Active Substance: ERLOTINIB HYDROCHLORIDE
     Indication: LUNG NEOPLASM MALIGNANT
     Dosage: UNK UNK, UNKNOWN FREQ.
     Route: 048
  2. DESALEX [Concomitant]
     Active Substance: DESLORATADINE
     Indication: PRODUCT USED FOR UNKNOWN INDICATION
     Dosage: UNK, UNKNOWN FREQ.
     Route: 065
  3. TARCEVA [Suspect]
     Active Substance: ERLOTINIB HYDROCHLORIDE
     Dosage: 150 MG, ONCE DAILY (DOSAGE IS UNCERTAIN)
     Route: 048
     Dates: start: 20180529, end: 20180613

REACTIONS (10)
  - Blood bilirubin increased [Unknown]
  - Facial pain [Unknown]
  - Paronychia [Unknown]
  - Erythema [Unknown]
  - Peripheral swelling [Unknown]
  - Stomatitis [Unknown]
  - Eyelid oedema [Unknown]
  - Mouth haemorrhage [Unknown]
  - Inflammation [Unknown]
  - Pain of skin [Unknown]

NARRATIVE: CASE EVENT DATE: 20180601
